FAERS Safety Report 22323782 (Version 1)
Quarter: 2023Q2

REPORT INFORMATION
  Report Type: Spontaneous
  Country: CA (occurrence: CA)
  Receive Date: 20230516
  Receipt Date: 20230516
  Transmission Date: 20230721
  Serious: Yes (Hospitalization, Other)
  Sender: FDA-Public Use
  Company Number: CA-JNJFOC-20230528876

PATIENT
  Sex: Female

DRUGS (6)
  1. REMICADE [Suspect]
     Active Substance: INFLIXIMAB
     Indication: Product used for unknown indication
     Route: 065
  2. INFLIXIMAB [Suspect]
     Active Substance: INFLIXIMAB
     Indication: Product used for unknown indication
     Route: 065
  3. INFLIXIMAB [Suspect]
     Active Substance: INFLIXIMAB
     Route: 065
  4. DESOXIMETASONE [Concomitant]
     Active Substance: DESOXIMETASONE
  5. EPIPEN JR [Concomitant]
     Active Substance: EPINEPHRINE
     Dosage: 0.15 MG/0.3 ML
     Route: 030
  6. PEN-V [PHENOXYMETHYLPENICILLIN POTASSIUM] [Concomitant]

REACTIONS (2)
  - Paternal exposure during pregnancy [Recovered/Resolved]
  - Premature delivery [Unknown]
